FAERS Safety Report 6609283-0 (Version None)
Quarter: 2010Q1

REPORT INFORMATION
  Report Type: 
  Country: None (occurrence: None)
  Receive Date: 20100224
  Receipt Date: 20100208
  Transmission Date: 20100710
  Serious: Yes (Other)
  Sender: FDA-Public Use
  Company Number: 2009SP042347

PATIENT
  Sex: Male

DRUGS (6)
  1. PEG-INTRON [Suspect]
     Indication: HEPATITIS C
     Dates: start: 20090311
  2. RIBAVIRIN [Suspect]
     Indication: HEPATITIS C
     Dosage: 1200 MG; QD; PO, 1000 MG; QD; PO
     Route: 048
     Dates: start: 20090311
  3. LISINOPRIL [Suspect]
     Indication: DRUG USE FOR UNKNOWN INDICATION
     Dosage: 40 MG; QD
     Dates: end: 20100107
  4. ALPRAZOLAM (CON.) [Concomitant]
  5. PROMETHAZINE (CON.) [Concomitant]
  6. SERTRALINE (CON.) [Concomitant]

REACTIONS (1)
  - COUGH [None]
